FAERS Safety Report 14301349 (Version 1)
Quarter: 2017Q4

REPORT INFORMATION
  Report Type: Spontaneous
  Country: US (occurrence: US)
  Receive Date: 20171218
  Receipt Date: 20171218
  Transmission Date: 20180321
  Serious: Yes (Other)
  Sender: FDA-Public Use
  Company Number: None

PATIENT
  Age: 63 Year
  Sex: Male

DRUGS (7)
  1. LEVOTHYROXINE. [Concomitant]
     Active Substance: LEVOTHYROXINE
  2. MULTIVITAMIN [Concomitant]
     Active Substance: VITAMINS
  3. TEMOZOLOMIDE. [Suspect]
     Active Substance: TEMOZOLOMIDE
     Indication: BRAIN NEOPLASM MALIGNANT
     Route: 048
     Dates: start: 20170602
  4. AVASTIN [Concomitant]
     Active Substance: BEVACIZUMAB
  5. TAMSULOSIN [Concomitant]
     Active Substance: TAMSULOSIN
  6. LOSARTAN. [Concomitant]
     Active Substance: LOSARTAN
  7. TEMOZOLOMIDE. [Suspect]
     Active Substance: TEMOZOLOMIDE
     Indication: BRAIN NEOPLASM MALIGNANT
     Route: 048
     Dates: start: 20170816

REACTIONS (2)
  - Neoplasm [None]
  - Drug ineffective [None]

NARRATIVE: CASE EVENT DATE: 20171215
